FAERS Safety Report 6774813-5 (Version None)
Quarter: 2010Q2

REPORT INFORMATION
  Report Type: 
  Country: None (occurrence: None)
  Receive Date: 20100617
  Receipt Date: 20100609
  Transmission Date: 20101027
  Serious: Yes (Hospitalization)
  Sender: FDA-Public Use
  Company Number: FR-ROCHE-709195

PATIENT
  Sex: Female

DRUGS (2)
  1. AVASTIN [Suspect]
     Indication: BREAST CANCER
     Route: 042
     Dates: start: 20100319, end: 20100319
  2. PACLITAXEL [Suspect]
     Indication: BREAST CANCER
     Dosage: DRUG REPORTED AS PACLITAXEL EBEWE
     Route: 042
     Dates: start: 20100319, end: 20100319

REACTIONS (1)
  - TOXIC SKIN ERUPTION [None]
